FAERS Safety Report 14212020 (Version 6)
Quarter: 2018Q1

REPORT INFORMATION
  Report Type: Report from Study
  Country: US (occurrence: US)
  Receive Date: 20171122
  Receipt Date: 20180209
  Transmission Date: 20180508
  Serious: Yes (Death, Hospitalization, Other)
  Sender: FDA-Public Use
  Company Number: US-GILEAD-2017-0302037

PATIENT
  Age: 43 Year
  Sex: Female

DRUGS (2)
  1. AMBRISENTAN [Suspect]
     Active Substance: AMBRISENTAN
     Indication: PRODUCT USED FOR UNKNOWN INDICATION
     Dosage: 10 MG, QD
     Route: 065
     Dates: start: 20130705
  2. REMODULIN [Concomitant]
     Active Substance: TREPROSTINIL

REACTIONS (8)
  - Localised oedema [Unknown]
  - Fluid retention [Unknown]
  - Blood count abnormal [Unknown]
  - Oedema peripheral [Unknown]
  - Fluid overload [Fatal]
  - Renal failure [Fatal]
  - Pulmonary hypertension [Fatal]
  - Urine abnormality [Unknown]
